FAERS Safety Report 20660639 (Version 1)
Quarter: 2022Q1

REPORT INFORMATION
  Report Type: Spontaneous
  Country: US (occurrence: US)
  Receive Date: 20220331
  Receipt Date: 20220331
  Transmission Date: 20220423
  Serious: No
  Sender: FDA-Public Use
  Company Number: US-PFIZER INC-2021750996

PATIENT
  Age: 68 Year
  Sex: Female
  Weight: 102.04 kg

DRUGS (4)
  1. SUTENT [Suspect]
     Active Substance: SUNITINIB MALATE
     Indication: Gastrointestinal stromal tumour
     Dosage: 37.5 MG, DAILY
     Route: 048
     Dates: start: 20210611
  2. SUTENT [Suspect]
     Active Substance: SUNITINIB MALATE
     Dosage: 37.5 MG, DAILY
     Route: 048
     Dates: start: 20210611
  3. ZINC [Concomitant]
     Active Substance: ZINC
     Dosage: 66 MG
  4. CALCIUM ASCORBATE [Concomitant]
     Active Substance: CALCIUM ASCORBATE
     Dosage: 1000 MG

REACTIONS (13)
  - Fatigue [Unknown]
  - Constipation [Unknown]
  - Gastric disorder [Unknown]
  - Gastrooesophageal reflux disease [Unknown]
  - Taste disorder [Unknown]
  - Sciatica [Unknown]
  - Food allergy [Unknown]
  - Diarrhoea [Unknown]
  - Dry mouth [Unknown]
  - Oral disorder [Unknown]
  - Oral pain [Unknown]
  - Splinter haemorrhages [Unknown]
  - Contusion [Unknown]
